FAERS Safety Report 10741399 (Version 4)
Quarter: 2015Q2

REPORT INFORMATION
  Report Type: Spontaneous
  Country: GB (occurrence: GB)
  Receive Date: 20150127
  Receipt Date: 20150622
  Transmission Date: 20150821
  Serious: Yes (Other)
  Sender: FDA-Public Use
  Company Number: GB-TEVA-536201ISR

PATIENT
  Sex: Male

DRUGS (20)
  1. TRAMADOL [Suspect]
     Active Substance: TRAMADOL
     Indication: PRODUCT USED FOR UNKNOWN INDICATION
     Route: 065
  2. PHYLLOCONTIN [Suspect]
     Active Substance: AMINOPHYLLINE
     Indication: PRODUCT USED FOR UNKNOWN INDICATION
     Route: 065
  3. E45 CREAM [Suspect]
     Active Substance: LANOLIN\LIGHT MINERAL OIL\PARAFFIN
     Indication: PRODUCT USED FOR UNKNOWN INDICATION
     Route: 065
  4. DOXAZOSIN [Suspect]
     Active Substance: DOXAZOSIN\DOXAZOSIN MESYLATE
     Indication: PRODUCT USED FOR UNKNOWN INDICATION
     Route: 065
  5. VENTOLIN [Suspect]
     Active Substance: ALBUTEROL SULFATE
     Indication: PRODUCT USED FOR UNKNOWN INDICATION
     Route: 065
  6. MYLAN MEBEVERINE [Suspect]
     Active Substance: MEBEVERINE
     Indication: PRODUCT USED FOR UNKNOWN INDICATION
     Dosage: 405 MILLIGRAM DAILY; 20 MINUTES BEFORE MEALS
     Route: 065
  7. CLONAZEPAM. [Concomitant]
     Active Substance: CLONAZEPAM
     Indication: PRODUCT USED FOR UNKNOWN INDICATION
     Route: 065
  8. PEPTAC PEPPERMINT [Suspect]
     Active Substance: CALCIUM CARBONATE\SODIUM ALGINATE\SODIUM BICARBONATE
     Dosage: 500 ML
     Route: 065
  9. SODIUM CHLORIDE. [Concomitant]
     Active Substance: SODIUM CHLORIDE
     Indication: PRODUCT USED FOR UNKNOWN INDICATION
     Route: 065
  10. CARBOCISTEINE [Suspect]
     Active Substance: CARBOCYSTEINE
     Indication: PRODUCT USED FOR UNKNOWN INDICATION
     Route: 065
  11. LOSARTAN [Suspect]
     Active Substance: LOSARTAN
     Indication: PRODUCT USED FOR UNKNOWN INDICATION
     Route: 065
  12. LANSOPRAZOLE. [Suspect]
     Active Substance: LANSOPRAZOLE
     Indication: PRODUCT USED FOR UNKNOWN INDICATION
     Dosage: 15 MILLIGRAM DAILY;
     Route: 065
  13. SERETIDE [Suspect]
     Active Substance: FLUTICASONE FUROATE\SALMETEROL XINAFOATE
     Indication: PRODUCT USED FOR UNKNOWN INDICATION
     Route: 065
  14. MOVICOL [Suspect]
     Active Substance: POLYETHYLENE GLYCOL 3350\POTASSIUM CHLORIDE\SODIUM BICARBONATE\SODIUM CHLORIDE
     Indication: PRODUCT USED FOR UNKNOWN INDICATION
     Route: 065
  15. PARACETOMOL [Suspect]
     Active Substance: ACETAMINOPHEN
     Indication: PRODUCT USED FOR UNKNOWN INDICATION
     Dosage: FORM OF ADMINISTRATION: GASTRO-RESISITANT TABLET
     Route: 065
  16. DIAZEPAM. [Suspect]
     Active Substance: DIAZEPAM
     Indication: PRODUCT USED FOR UNKNOWN INDICATION
     Route: 065
  17. SPIRIVA [Suspect]
     Active Substance: TIOTROPIUM BROMIDE MONOHYDRATE
     Indication: PRODUCT USED FOR UNKNOWN INDICATION
     Route: 065
  18. COLGATE DURAPHAT [Suspect]
     Active Substance: SODIUM FLUORIDE
     Indication: PRODUCT USED FOR UNKNOWN INDICATION
     Route: 065
  19. STERIMAR NASAL SPRAY [Suspect]
     Active Substance: SEA WATER
     Route: 065
  20. ACIDEX [Concomitant]
     Active Substance: CALCIUM CARBONATE\SODIUM ALGINATE\SODIUM BICARBONATE
     Indication: PRODUCT USED FOR UNKNOWN INDICATION

REACTIONS (8)
  - Sinusitis [Unknown]
  - Cough [Unknown]
  - Somnambulism [Unknown]
  - Lower respiratory tract infection [Unknown]
  - Hallucination [Unknown]
  - Haematoma [Unknown]
  - Nightmare [Unknown]
  - Eye infection [Unknown]

NARRATIVE: CASE EVENT DATE: 2008
